FAERS Safety Report 15333957 (Version 1)
Quarter: 2018Q3

REPORT INFORMATION
  Report Type: Spontaneous
  Country: None (occurrence: ZA)
  Receive Date: 20180830
  Receipt Date: 20180830
  Transmission Date: 20181010
  Serious: Yes (Hospitalization, Other)
  Sender: FDA-Public Use
  Company Number: ZA-STI PHARMA LLC-2054466

PATIENT
  Age: 31 Year
  Sex: Male

DRUGS (6)
  1. LEVOFLOXACIN. [Concomitant]
     Active Substance: LEVOFLOXACIN
     Route: 048
     Dates: start: 20171219
  2. ETHAMBUTOL HYDROCHLORIDE. [Suspect]
     Active Substance: ETHAMBUTOL HYDROCHLORIDE
     Route: 048
     Dates: start: 20171124
  3. LINEZOLID. [Suspect]
     Active Substance: LINEZOLID
     Route: 048
     Dates: start: 20180511, end: 20180727
  4. CLOFAZAMINE [Concomitant]
     Active Substance: CLOFAZIMINE
     Route: 048
     Dates: start: 20171124
  5. TERIZIDONE [Concomitant]
     Active Substance: TERIZIDONE
     Route: 048
     Dates: start: 20180313
  6. DELAMANID TABLET [Concomitant]
     Route: 048
     Dates: start: 20180511

REACTIONS (2)
  - Neuropathy peripheral [Not Recovered/Not Resolved]
  - Anaemia [Not Recovered/Not Resolved]

NARRATIVE: CASE EVENT DATE: 20180725
